FAERS Safety Report 5038934-X (Version None)
Quarter: 2006Q2

REPORT INFORMATION
  Report Type: 
  Country: None (occurrence: None)
  Receive Date: 20060601
  Receipt Date: 20060102
  Transmission Date: 20061013
  Serious: No
  Sender: FDA-Public Use
  Company Number: 2006PV006467

PATIENT
  Age: 50 Year
  Sex: Female
  Weight: 108.8633 kg

DRUGS (7)
  1. BYETTA [Suspect]
     Indication: DIABETES MELLITUS NON-INSULIN-DEPENDENT
     Dosage: SEE IMAGE
     Route: 058
     Dates: start: 20051125, end: 20051224
  2. BYETTA [Suspect]
     Indication: DIABETES MELLITUS NON-INSULIN-DEPENDENT
     Dosage: SEE IMAGE
     Route: 058
     Dates: start: 20051225
  3. AVANDIA [Concomitant]
  4. METFORMIN [Concomitant]
  5. GLUCOTROL [Concomitant]
  6. ASPIRIN [Concomitant]
  7. VITAMIN E /001105/ [Concomitant]

REACTIONS (1)
  - INJECTION SITE BRUISING [None]
